FAERS Safety Report 7973837-X (Version None)
Quarter: 2011Q4

REPORT INFORMATION
  Report Type: 
  Country: None (occurrence: None)
  Receive Date: 20111213
  Receipt Date: 20111206
  Transmission Date: 20120403
  Serious: Yes (Hospitalization)
  Sender: FDA-Public Use
  Company Number: AU-B.I. PHARMACEUTICALS,INC./RIDGEFIELD-2011-AU-02244AU

PATIENT
  Sex: Female
  Weight: 69 kg

DRUGS (5)
  1. PRADAXA [Suspect]
     Indication: ATRIAL FIBRILLATION
  2. PRADAXA [Suspect]
     Indication: CEREBRAL ISCHAEMIA
  3. PRADAXA [Suspect]
     Indication: CEREBROVASCULAR ACCIDENT PROPHYLAXIS
     Dosage: 300 MG
     Dates: start: 20110826, end: 20111117
  4. FELODIPINE [Concomitant]
     Indication: HYPERTENSION
     Dosage: 10 MG
  5. ATENOLOL [Concomitant]
     Indication: HYPERTENSION
     Dosage: 50 MG

REACTIONS (7)
  - DIPLOPIA [None]
  - CONFUSIONAL STATE [None]
  - HYPOAESTHESIA [None]
  - CEREBRAL ISCHAEMIA [None]
  - HEADACHE [None]
  - DYSAESTHESIA [None]
  - PARAESTHESIA [None]
